FAERS Safety Report 5276952-7 (Version None)
Quarter: 2007Q1

REPORT INFORMATION
  Report Type: 
  Country: None (occurrence: None)
  Receive Date: 20070327
  Receipt Date: 20070321
  Transmission Date: 20070707
  Serious: Yes (Hospitalization)
  Sender: FDA-Public Use
  Company Number: FR-BRISTOL-MYERS SQUIBB COMPANY-13725742

PATIENT
  Age: 81 Year
  Sex: Male

DRUGS (17)
  1. FOSINOPRIL SODIUM AND HYDROCHLOROTHIAZIDE [Suspect]
     Indication: ESSENTIAL HYPERTENSION
     Route: 048
     Dates: end: 20070117
  2. ALDACTONE [Suspect]
     Indication: ESSENTIAL HYPERTENSION
     Route: 048
     Dates: end: 20070117
  3. TRAMADOL HCL [Concomitant]
     Indication: FEMORAL NECK FRACTURE
     Route: 048
  4. ACETAMINOPHEN [Concomitant]
     Route: 048
  5. LEVOTHYROXINE SODIUM [Concomitant]
     Route: 048
  6. COMBIVENT [Concomitant]
     Indication: BRONCHITIS CHRONIC
     Route: 055
     Dates: end: 20070118
  7. DESLORATADINE [Concomitant]
     Route: 048
     Dates: end: 20070118
  8. NEBILOX [Concomitant]
     Indication: ESSENTIAL HYPERTENSION
     Route: 048
     Dates: end: 20070117
  9. COUMADIN [Concomitant]
  10. NITROGLYCERIN [Concomitant]
  11. ALLOPURINOL [Concomitant]
     Route: 048
  12. EXELON [Concomitant]
     Route: 048
  13. EQUANIL [Concomitant]
     Route: 048
  14. OMEPRAZOLE [Concomitant]
     Route: 048
  15. LORAZEPAM [Concomitant]
     Route: 048
  16. DAFLON [Concomitant]
     Route: 048
  17. TRANSIPEG [Concomitant]

REACTIONS (4)
  - BLOOD POTASSIUM INCREASED [None]
  - BLOOD SODIUM DECREASED [None]
  - BLOOD UREA INCREASED [None]
  - PSYCHOMOTOR HYPERACTIVITY [None]
